FAERS Safety Report 9276042 (Version 1)
Quarter: 2013Q2

REPORT INFORMATION
  Report Type: Spontaneous
  Country: US (occurrence: None)
  Receive Date: 20130502
  Receipt Date: 20130502
  Transmission Date: 20140414
  Serious: Yes (Other)
  Sender: FDA-Public Use
  Company Number: None

PATIENT
  Age: 58 Year
  Sex: Female
  Weight: 74.84 kg

DRUGS (1)
  1. LIDOCAINE [Suspect]

REACTIONS (10)
  - Heart rate increased [None]
  - Presyncope [None]
  - Irritability [None]
  - Tremor [None]
  - Nervousness [None]
  - Anxiety [None]
  - Balance disorder [None]
  - Blood pressure increased [None]
  - Flushing [None]
  - Seizure like phenomena [None]
